FAERS Safety Report 23641986 (Version 1)
Quarter: 2024Q1

REPORT INFORMATION
  Report Type: Spontaneous
  Country: US (occurrence: US)
  Receive Date: 20240318
  Receipt Date: 20240318
  Transmission Date: 20240409
  Serious: Yes (Hospitalization, Other)
  Sender: FDA-Public Use
  Company Number: US-AMGEN-USASP2024051891

PATIENT
  Age: 73 Year
  Sex: Female

DRUGS (17)
  1. APREMILAST [Suspect]
     Active Substance: APREMILAST
     Indication: Psoriatic arthropathy
     Dosage: 30 MILLIGRAM, BID
     Route: 065
  2. HYDROCHLOROTHIAZIDE [Concomitant]
     Active Substance: HYDROCHLOROTHIAZIDE
     Dosage: 12.5 MILLIGRAM, QD
  3. LISINOPRIL [Concomitant]
     Active Substance: LISINOPRIL
     Dosage: 20 MILLIGRAM, QD
  4. VITAMIN A [Concomitant]
     Active Substance: VITAMIN A
     Dosage: 12000 MICROGRAM, QD
  5. VITAMIN B1 [Concomitant]
     Active Substance: THIAMINE HYDROCHLORIDE
     Dosage: 2.8 MICROGRAM, QD
  6. VITAMIN B2 [Concomitant]
     Active Substance: RIBOFLAVIN
     Dosage: 1.7 MILLIGRAM, QD
  7. VITAMIN B6 [Concomitant]
     Active Substance: PYRIDOXINE HYDROCHLORIDE
     Dosage: 4.3 MILLIGRAM, QD
  8. FOLIC ACID [Concomitant]
     Active Substance: FOLIC ACID
     Dosage: 1200 MICROGRAM
  9. VITAMIN B12 [Concomitant]
     Active Substance: CYANOCOBALAMIN
     Dosage: 2.4 MICROGRAM, QD
  10. VITAMIN B12 [Concomitant]
     Active Substance: CYANOCOBALAMIN
     Dosage: 1000 MICROGRAM, QOD
     Route: 048
  11. VITAMIN C [Concomitant]
     Active Substance: ASCORBIC ACID
     Dosage: 120 MILLIGRAM
  12. VITAMIN D2 [Concomitant]
     Active Substance: ERGOCALCIFEROL
     Dosage: 35 MICROGRAM, QD
  13. VITAMIN E [Concomitant]
     Active Substance: .ALPHA.-TOCOPHEROL
     Dosage: 14 MILLIGRAM, QD
  14. CALCIUM [Concomitant]
     Active Substance: CALCIUM
     Dosage: 200 MILLIGRAM, QD
  15. IRON [Concomitant]
     Active Substance: IRON
     Dosage: 28 MILLIGRAM, QD
  16. NIACIN [Concomitant]
     Active Substance: NIACIN
     Dosage: 20 MILLIGRAM, QD
  17. ZINC [Concomitant]
     Active Substance: PYRITHIONE ZINC\ZINC\ZINC CHLORIDE
     Dosage: 25 MILLIGRAM, QD

REACTIONS (18)
  - Renal tubular acidosis [Unknown]
  - Prohormone brain natriuretic peptide increased [Unknown]
  - Granulocytosis [Unknown]
  - Blood parathyroid hormone decreased [Unknown]
  - Candida infection [Unknown]
  - Weight decreased [Unknown]
  - Confusional state [Unknown]
  - Nausea [Unknown]
  - Constipation [Unknown]
  - Vomiting [Unknown]
  - Anaemia [Not Recovered/Not Resolved]
  - Leukocytosis [Unknown]
  - Asthenia [Unknown]
  - Decreased appetite [Unknown]
  - Fall [Unknown]
  - Thrombocytosis [Unknown]
  - Lipase increased [Recovering/Resolving]
  - Malaise [Unknown]
